FAERS Safety Report 15200986 (Version 1)
Quarter: 2018Q3

REPORT INFORMATION
  Report Type: Spontaneous
  Country: US (occurrence: US)
  Receive Date: 20180627
  Receipt Date: 20180627
  Transmission Date: 20181010
  Serious: Yes (Death)
  Sender: FDA-Public Use
  Company Number: None

PATIENT
  Age: 60 Year
  Sex: Female
  Weight: 61.7 kg

DRUGS (22)
  1. LOTEPREDNOL [Concomitant]
     Active Substance: LOTEPREDNOL
  2. OMEPRAZOLE. [Concomitant]
     Active Substance: OMEPRAZOLE
  3. PREDNISONE. [Concomitant]
     Active Substance: PREDNISONE
  4. SULFAMETHOXAZOLE?TRIMETHOPRIM [Concomitant]
     Active Substance: SULFAMETHOXAZOLE\TRIMETHOPRIM
  5. MULTIVITAMIN [Concomitant]
     Active Substance: VITAMINS
  6. ACETAMINOPHEN. [Concomitant]
     Active Substance: ACETAMINOPHEN
  7. METFORMIN [Concomitant]
     Active Substance: METFORMIN HYDROCHLORIDE
  8. SYSTANE ULTRA DROPS [Concomitant]
  9. ABATACEPT [Suspect]
     Active Substance: ABATACEPT
     Indication: CHRONIC GRAFT VERSUS HOST DISEASE
     Route: 042
     Dates: start: 20180117, end: 20180606
  10. ASPIRIN. [Concomitant]
     Active Substance: ASPIRIN
  11. BUMETANIDE. [Concomitant]
     Active Substance: BUMETANIDE
  12. SIROLIMUS. [Concomitant]
     Active Substance: SIROLIMUS
  13. ACETYLCHOLINE [Concomitant]
     Active Substance: ACETYLCHOLINE CHLORIDE
  14. ACYCLOVIR. [Concomitant]
     Active Substance: ACYCLOVIR
  15. ESZOPICLONE. [Concomitant]
     Active Substance: ESZOPICLONE
  16. METOPROLOL. [Concomitant]
     Active Substance: METOPROLOL
  17. ATORVASTATIN [Concomitant]
     Active Substance: ATORVASTATIN
  18. FENOFIRBATE [Concomitant]
  19. FLUOROMETHOLONE. [Concomitant]
     Active Substance: FLUOROMETHOLONE
  20. FOLIC ACID. [Concomitant]
     Active Substance: FOLIC ACID
  21. HYDRALAZINE [Concomitant]
     Active Substance: HYDRALAZINE HYDROCHLORIDE
  22. AMITRIPTYLINE [Concomitant]
     Active Substance: AMITRIPTYLINE

REACTIONS (6)
  - Hepatitis [None]
  - Oliguria [None]
  - Condition aggravated [None]
  - Dysphagia [None]
  - Herpes simplex [None]
  - Oropharyngeal pain [None]

NARRATIVE: CASE EVENT DATE: 20180620
